FAERS Safety Report 19979116 (Version 1)
Quarter: 2021Q4

REPORT INFORMATION
  Report Type: Spontaneous
  Country: US (occurrence: US)
  Receive Date: 20211020
  Receipt Date: 20211020
  Transmission Date: 20220303
  Serious: Yes (Hospitalization)
  Sender: FDA-Public Use
  Company Number: None

PATIENT
  Sex: Male

DRUGS (7)
  1. PULMOZYME [Suspect]
     Active Substance: DORNASE ALFA
     Indication: Cystic fibrosis
     Dosage: ?          OTHER DOSE:2.5MG/2.5ML;
     Route: 055
     Dates: start: 20210318
  2. CYCLOSPORINE MODIFIED [Concomitant]
     Active Substance: CYCLOSPORINE
  3. MYCOPHENOLATE MOFETIL [Concomitant]
     Active Substance: MYCOPHENOLATE MOFETIL
  4. SIROLIMUS [Concomitant]
     Active Substance: SIROLIMUS
  5. SIROLIMUS [Concomitant]
     Active Substance: SIROLIMUS
  6. SODIUM CHLOR NEB [Concomitant]
  7. TOBRAMYCIN [Concomitant]
     Active Substance: TOBRAMYCIN

REACTIONS (2)
  - Transplant rejection [None]
  - Pneumonia [None]
